FAERS Safety Report 11633017 (Version 1)
Quarter: 2015Q4

REPORT INFORMATION
  Report Type: Spontaneous
  Country: PT (occurrence: PT)
  Receive Date: 20151015
  Receipt Date: 20151015
  Transmission Date: 20160304
  Serious: Yes (Hospitalization, Other)
  Sender: FDA-Public Use
  Company Number: PT-JUBILANT CADISTA PHARMACEUTICALS-2015JUB00326

PATIENT
  Age: 33 Year
  Sex: Female

DRUGS (3)
  1. METHYLPREDNISOLONE. [Suspect]
     Active Substance: METHYLPREDNISOLONE
     Indication: MULTIPLE SCLEROSIS
     Dosage: 1 G, 1X/DAY
     Route: 048
  2. GLATIRAMER ACETATE. [Concomitant]
     Active Substance: GLATIRAMER ACETATE
  3. CYCLOPHOSPHAMIDE. [Concomitant]
     Active Substance: CYCLOPHOSPHAMIDE

REACTIONS (2)
  - Drug-induced liver injury [Recovered/Resolved]
  - Hepatic failure [Recovered/Resolved]
